FAERS Safety Report 8178454-7 (Version None)
Quarter: 2012Q1

REPORT INFORMATION
  Report Type: 
  Country: None (occurrence: None)
  Receive Date: 20120301
  Receipt Date: 20120229
  Transmission Date: 20120608
  Serious: No
  Sender: FDA-Public Use
  Company Number: US-PFIZER INC-2012054319

PATIENT
  Sex: Female
  Weight: 66.213 kg

DRUGS (13)
  1. CHANTIX [Suspect]
     Indication: SMOKING CESSATION THERAPY
     Dosage: 0.5 MG, 1X/DAY
     Route: 048
     Dates: start: 20120205, end: 20120205
  2. SIMVASTATIN [Concomitant]
     Dosage: UNK
  3. CHANTIX [Suspect]
     Dosage: UNK
     Route: 048
     Dates: start: 20120206
  4. OMEPRAZOLE [Concomitant]
     Dosage: UNK
  5. DULOXETINE [Concomitant]
     Dosage: UNK
  6. METFORMIN [Concomitant]
     Dosage: UNK
  7. ACETYLSALICYLIC ACID [Concomitant]
     Dosage: UNK
  8. ISOSORBIDE [Concomitant]
     Dosage: UNK
  9. AMLODIPINE BESYLATE AND BENAZEPRIL HCL [Concomitant]
     Dosage: UNK
  10. METHOCARBAMOL [Concomitant]
     Dosage: UNK
  11. OXYCODONE [Concomitant]
     Dosage: UNK
  12. LEVOTHYROXINE [Concomitant]
     Dosage: UNK
  13. GABAPENTIN [Concomitant]
     Dosage: UNK

REACTIONS (1)
  - POLLAKIURIA [None]
